FAERS Safety Report 4884084-2 (Version None)
Quarter: 2006Q1

REPORT INFORMATION
  Report Type: 
  Country: None (occurrence: None)
  Receive Date: 20060117
  Receipt Date: 20060109
  Transmission Date: 20060701
  Serious: Yes (Death, Life-Threatening, Hospitalization)
  Sender: FDA-Public Use
  Company Number: 13143

PATIENT
  Age: 73 Year
  Sex: Female
  Weight: 62.9 kg

DRUGS (12)
  1. CYTARABINE [Suspect]
     Indication: ACUTE MYELOID LEUKAEMIA
     Dosage: 10MG/M2 BID SC
     Route: 058
     Dates: start: 20051123, end: 20051207
  2. ARSENIC TRIOXIDE [Suspect]
     Indication: ACUTE MYELOID LEUKAEMIA
     Dosage: 15.73 MG DAILY IV
     Route: 042
     Dates: start: 20051223, end: 20051205
  3. LANSOPRAZOLE [Concomitant]
  4. LOPERAMIDE [Concomitant]
  5. LOMOTIL [Concomitant]
  6. LEVALBUTEROL HYDROCHLORIDE [Concomitant]
  7. MEROPENEM [Concomitant]
  8. DOCUSATE SODIUM [Concomitant]
  9. SENNA [Concomitant]
  10. PROCHLORPERAZINE [Concomitant]
  11. HEPARIN LOCK-FLUSH [Concomitant]
  12. SODIUM CHLORIDE [Concomitant]

REACTIONS (3)
  - HAEMODIALYSIS [None]
  - HYPOTENSION [None]
  - RENAL FAILURE ACUTE [None]
